FAERS Safety Report 18123093 (Version 1)
Quarter: 2020Q3

REPORT INFORMATION
  Report Type: Spontaneous
  Country: FR (occurrence: FR)
  Receive Date: 20200807
  Receipt Date: 20200807
  Transmission Date: 20201103
  Serious: Yes (Hospitalization)
  Sender: FDA-Public Use
  Company Number: FR-CADILA HEALTHCARE LIMITED-FR-ZYDUS-023042

PATIENT

DRUGS (4)
  1. IPERTEN [Suspect]
     Active Substance: MANIDIPINE
     Indication: HYPERTENSION
     Dosage: ()
     Route: 048
     Dates: start: 201506, end: 201506
  2. TRAMADOL. [Suspect]
     Active Substance: TRAMADOL
     Indication: OSTEOARTHRITIS
     Route: 048
     Dates: start: 201506, end: 201506
  3. CELEBREX [Suspect]
     Active Substance: CELECOXIB
     Indication: OSTEOARTHRITIS
     Dosage: ()
     Route: 048
     Dates: start: 201506, end: 20180512
  4. MICARDIS [Suspect]
     Active Substance: TELMISARTAN
     Indication: HYPERTENSION
     Dosage: ()
     Route: 048
     Dates: start: 201506, end: 201506

REACTIONS (1)
  - Bone marrow failure [Not Recovered/Not Resolved]

NARRATIVE: CASE EVENT DATE: 20180512
